FAERS Safety Report 18558567 (Version 1)
Quarter: 2020Q4

REPORT INFORMATION
  Report Type: Other
  Country: US (occurrence: US)
  Receive Date: 20201130
  Receipt Date: 20201130
  Transmission Date: 20210114
  Serious: Yes (Hospitalization)
  Sender: FDA-Public Use
  Company Number: US-ROCHE-2661207

PATIENT
  Sex: Female

DRUGS (13)
  1. VITAMIN D3 [Concomitant]
     Active Substance: CHOLECALCIFEROL
     Dosage: TAKE 2 TABLET BY MOUTH DAILY
     Route: 048
  2. ZYRTEK [Concomitant]
     Active Substance: CETIRIZINE HYDROCHLORIDE
     Indication: SEASONAL ALLERGY
     Dosage: TAKE 10 MG BY MOUTH DAILY
     Route: 048
  3. DESYREL [Concomitant]
     Active Substance: TRAZODONE HYDROCHLORIDE
     Dosage: TAKE 2 TABLET BY MOUTH ONCE DAILY AT BED TIME
     Route: 048
  4. CYMBALTA [Concomitant]
     Active Substance: DULOXETINE HYDROCHLORIDE
     Dosage: TAKE 2 CAPSULE BY MOUTH ONCE DAILY
     Route: 048
  5. ACTEMRA [Suspect]
     Active Substance: TOCILIZUMAB
     Dosage: INFUSE 4MG/KG (280 MG) INTRAVENOUSLY ONCE IN A MONTH
     Route: 042
  6. CARDIZEM CD [Concomitant]
     Active Substance: DILTIAZEM HYDROCHLORIDE
     Dosage: TAKE 1 CAPSULE BY MOUTH DAILY
     Route: 048
  7. FLAXSEED [Concomitant]
     Active Substance: FLAX SEED
     Dosage: TAKE 1 CAPSULE BY MOUTH DAILY
     Route: 048
  8. NEURONTIN [Concomitant]
     Active Substance: GABAPENTIN
     Dosage: INCREASE BY 100 MG EVERY 5 DAYS UNTIL 300 MG 3 TIMES PER DAY(START WITH 300 MG IN ARM AND 200 MG 2 T
     Route: 048
  9. TUMS [Concomitant]
     Active Substance: CALCIUM CARBONATE
     Dosage: TAKE 2 TABLET BY MOUTH TWO TIMES A DAY WITH MEAL
     Route: 048
  10. ACTEMRA [Suspect]
     Active Substance: TOCILIZUMAB
     Indication: GIANT CELL ARTERITIS
     Dosage: INFUSE 4MG/KG (280MG) INTRAVENOUSLY ONCE IN A MONTH
     Route: 042
  11. METROGEL [Concomitant]
     Active Substance: METRONIDAZOLE
     Dosage: APPLY THIN LAYER TOPICALLY ONCE DAILY
     Route: 061
  12. COUMADIN [Concomitant]
     Active Substance: WARFARIN SODIUM
     Dosage: TAKE 1 TABLET BY MOUTH DAILY OR AS DIRECTED BY  ANTICOAGULATION NURSE
     Route: 048
  13. LIPITOR [Concomitant]
     Active Substance: ATORVASTATIN CALCIUM
     Dosage: TAKE 1 TABLET BY MOUTH ONCE DAILY
     Route: 048

REACTIONS (3)
  - COVID-19 [Unknown]
  - Intentional product use issue [Unknown]
  - Off label use [Unknown]
